FAERS Safety Report 4611723-3 (Version None)
Quarter: 2005Q2

REPORT INFORMATION
  Report Type: 
  Country: None (occurrence: None)
  Receive Date: 20050311
  Receipt Date: 20041118
  Transmission Date: 20051028
  Serious: No
  Sender: FDA-Public Use
  Company Number: 2004-BP-10278BP

PATIENT
  Age: 78 Year
  Sex: Female

DRUGS (1)
  1. SPIRIVA [Suspect]
     Dosage: 18 MCG (18 MCG), IH
     Route: 055
     Dates: start: 20041013

REACTIONS (1)
  - INTERNATIONAL NORMALISED RATIO INCREASED [None]
